FAERS Safety Report 5134114-8 (Version None)
Quarter: 2006Q4

REPORT INFORMATION
  Report Type: 
  Country: None (occurrence: None)
  Receive Date: 20061024
  Receipt Date: 20061016
  Transmission Date: 20070319
  Serious: Yes (Hospitalization)
  Sender: FDA-Public Use
  Company Number: FR-AVENTIS-200613625FR

PATIENT
  Age: 81 Year
  Sex: Female
  Weight: 59 kg

DRUGS (9)
  1. CLAFORAN                           /00497602/ [Suspect]
     Indication: ENTEROBACTER INFECTION
     Route: 042
     Dates: start: 20060913, end: 20060921
  2. IMOVANE [Concomitant]
     Route: 048
  3. KENZEN [Concomitant]
     Route: 048
  4. OMEPRAZOLE [Concomitant]
     Route: 048
  5. LASILIX                            /00032601/ [Concomitant]
     Route: 048
  6. AMLOR [Concomitant]
     Route: 048
  7. PREVISCAN                          /00261401/ [Concomitant]
  8. ACETAMINOPHEN [Concomitant]
  9. GENTAMICIN [Concomitant]

REACTIONS (5)
  - APHASIA [None]
  - DISORIENTATION [None]
  - DYSKINESIA [None]
  - NEUROLOGICAL EXAMINATION ABNORMAL [None]
  - TREMOR [None]
